FAERS Safety Report 25847168 (Version 1)
Quarter: 2025Q3

REPORT INFORMATION
  Report Type: Spontaneous
  Country: GB (occurrence: GB)
  Receive Date: 20250925
  Receipt Date: 20250925
  Transmission Date: 20251020
  Serious: Yes (Hospitalization)
  Sender: VERTEX
  Company Number: GB-VERTEX PHARMACEUTICALS-2025-015678

PATIENT
  Sex: Female

DRUGS (14)
  1. ELEXACAFTOR\IVACAFTOR\TEZACAFTOR [Suspect]
     Active Substance: ELEXACAFTOR\IVACAFTOR\TEZACAFTOR
     Indication: Cystic fibrosis
     Dosage: TWO TABS OF 75 MG IVA/50 MG TEZA/100 MG ELEXA IN AM
     Route: 048
     Dates: start: 2023
  2. KALYDECO [Suspect]
     Active Substance: IVACAFTOR
     Indication: Cystic fibrosis
     Route: 048
     Dates: start: 2023
  3. PULMOZYME [Concomitant]
     Active Substance: DORNASE ALFA
  4. AZTREONAM [Concomitant]
     Active Substance: AZTREONAM
  5. ALBUTEROL [Concomitant]
     Active Substance: ALBUTEROL
     Route: 055
  6. SERETIDE [Concomitant]
     Active Substance: FLUTICASONE PROPIONATE\SALMETEROL XINAFOATE
  7. MONTELUKAST [Concomitant]
     Active Substance: MONTELUKAST
  8. AZITHROMYCIN [Concomitant]
     Active Substance: AZITHROMYCIN
  9. VITAMIN D [Concomitant]
     Active Substance: VITAMIN D NOS
  10. BECONASE AQ [Concomitant]
     Active Substance: BECLOMETHASONE DIPROPIONATE MONOHYDRATE
     Route: 045
  11. PROVERA [Concomitant]
     Active Substance: MEDROXYPROGESTERONE ACETATE
  12. PROGESTERONE [Concomitant]
     Active Substance: PROGESTERONE
  13. OMEPRAZOLE [Concomitant]
     Active Substance: OMEPRAZOLE
  14. ESTRADIOL [Concomitant]
     Active Substance: ESTRADIOL

REACTIONS (1)
  - Lower respiratory tract infection [Unknown]
